FAERS Safety Report 20333318 (Version 16)
Quarter: 2022Q4

REPORT INFORMATION
  Report Type: Report from Study
  Country: CN (occurrence: None)
  Receive Date: 20220113
  Receipt Date: 20221027
  Transmission Date: 20230113
  Serious: Yes (Hospitalization)
  Sender: FDA-Public Use
  Company Number: CN-Eisai Medical Research-EC-2022-106636

PATIENT
  Age: 72 Year
  Sex: Male
  Weight: 53.5 kg

DRUGS (10)
  1. LENVATINIB [Suspect]
     Active Substance: LENVATINIB
     Indication: Hepatocellular carcinoma
     Route: 048
     Dates: start: 20211217, end: 20220106
  2. LENVATINIB [Suspect]
     Active Substance: LENVATINIB
     Route: 048
     Dates: start: 20220112, end: 20220720
  3. PEMBROLIZUMAB [Suspect]
     Active Substance: PEMBROLIZUMAB
     Indication: Hepatocellular carcinoma
     Dosage: MK-1308A (QUAVONLIMAB (MK-1308) 25MG (+) PEMBROLIZUMAB (MK-3475) 400MG)
     Route: 042
     Dates: start: 20211217, end: 20211217
  4. QUAVONLIMAB [Suspect]
     Active Substance: QUAVONLIMAB
     Dosage: MK-1308A (QUAVONLIMAB (MK-1308) 25MG (+) PEMBROLIZUMAB (MK-3475) 400MG)
     Route: 042
     Dates: start: 20220128, end: 20220711
  5. NIFEDIPINE [Concomitant]
     Active Substance: NIFEDIPINE
     Dates: start: 20080701, end: 20211224
  6. NIFEDIPINE [Concomitant]
     Active Substance: NIFEDIPINE
     Dates: start: 20080701, end: 20220208
  7. ENTECAVIR [Concomitant]
     Active Substance: ENTECAVIR
     Dates: start: 20210610
  8. VONOPRAZAN FUMARATE [Concomitant]
     Active Substance: VONOPRAZAN FUMARATE
     Dates: start: 20211209, end: 20211224
  9. IRBESARTAN AND HYDROCHLOROTHIAZIDE [Concomitant]
     Active Substance: HYDROCHLOROTHIAZIDE\IRBESARTAN
     Dates: start: 20211225, end: 20220308
  10. BICYCLOL [Concomitant]
     Active Substance: BICYCLOL
     Dates: start: 20220101

REACTIONS (1)
  - Liver function test increased [Recovered/Resolved]

NARRATIVE: CASE EVENT DATE: 20220106
